FAERS Safety Report 23017913 (Version 3)
Quarter: 2023Q4

REPORT INFORMATION
  Report Type: Spontaneous
  Country: CA (occurrence: CA)
  Receive Date: 20231003
  Receipt Date: 20231019
  Transmission Date: 20240109
  Serious: Yes (Other)
  Sender: FDA-Public Use
  Company Number: CA-CELLTRION INC.-2023CA018895

PATIENT

DRUGS (23)
  1. YUFLYMA [Suspect]
     Active Substance: ADALIMUMAB-AATY
     Indication: Colitis ulcerative
     Dosage: STARTING DOSE: WEEK 0: 160MG SC
     Route: 058
     Dates: start: 20230705
  2. YUFLYMA [Suspect]
     Active Substance: ADALIMUMAB-AATY
     Dosage: WEEK 2: 80MG SC
     Route: 058
  3. YUFLYMA [Suspect]
     Active Substance: ADALIMUMAB-AATY
     Dosage: MAINTENANCE DOSE: WEEK 4: 40MG SC
     Route: 058
  4. YUFLYMA [Suspect]
     Active Substance: ADALIMUMAB-AATY
     Dosage: THEN CONTINUOUSLY YUFLYMA 40MG SC Q 2 WEEKS
     Route: 058
     Dates: start: 20230926
  5. PLAVIX [Concomitant]
     Active Substance: CLOPIDOGREL BISULFATE
  6. AMLODIPINE [Concomitant]
     Active Substance: AMLODIPINE BESYLATE
  7. CITALOPRAM [Concomitant]
     Active Substance: CITALOPRAM HYDROBROMIDE
  8. GLICLAZIDE [Concomitant]
     Active Substance: GLICLAZIDE
  9. ATORVASTATIN [Concomitant]
     Active Substance: ATORVASTATIN
  10. DEXILANT [Concomitant]
     Active Substance: DEXLANSOPRAZOLE
  11. JARDIANCE [Concomitant]
     Active Substance: EMPAGLIFLOZIN
  12. METFORMIN [Concomitant]
     Active Substance: METFORMIN HYDROCHLORIDE
  13. PERINDOPRIL [Concomitant]
     Active Substance: PERINDOPRIL
  14. INDAPAMIDE [Concomitant]
     Active Substance: INDAPAMIDE
  15. OZEMPIC [Concomitant]
     Active Substance: SEMAGLUTIDE
  16. ZOPICLONE [Concomitant]
     Active Substance: ZOPICLONE
  17. NICODERM CQ [Concomitant]
     Active Substance: NICOTINE
  18. POLYETHYLENE GLYCOL 3350 [Concomitant]
     Active Substance: POLYETHYLENE GLYCOL 3350
  19. CLOBETASOL [Concomitant]
     Active Substance: CLOBETASOL
  20. CETIRIZINE [Concomitant]
     Active Substance: CETIRIZINE HYDROCHLORIDE
  21. VITAMINS [Concomitant]
     Active Substance: VITAMINS
  22. DICLOFENAC [Concomitant]
     Active Substance: DICLOFENAC
  23. TOPICORT [Concomitant]
     Active Substance: DESOXIMETASONE

REACTIONS (6)
  - Haematochezia [Recovering/Resolving]
  - Fistula [Recovering/Resolving]
  - Faeces soft [Recovering/Resolving]
  - General physical health deterioration [Recovering/Resolving]
  - Pain [Recovering/Resolving]
  - Drug ineffective [Unknown]
